FAERS Safety Report 9814672 (Version 1)
Quarter: 2014Q1

REPORT INFORMATION
  Report Type: Spontaneous
  Country: US (occurrence: US)
  Receive Date: 20140113
  Receipt Date: 20140113
  Transmission Date: 20141002
  Serious: Yes (Hospitalization, Other)
  Sender: FDA-Public Use
  Company Number: CHPA2014US000646

PATIENT
  Age: 91 Year
  Sex: Female

DRUGS (5)
  1. MAALOX ANTACID/ANTIGAS MAX QDTABS WILDB [Suspect]
     Indication: DYSPEPSIA
     Dosage: 0.5 DF, PRN
     Route: 048
  2. MAALOX ANTACID/ANTIGAS MAX QDTABS WILDB [Suspect]
     Indication: OFF LABEL USE
  3. MAALOX ANTACID/ANTIGAS MAX QDTABS WILDB [Suspect]
     Indication: DYSPEPSIA
  4. MAALOX ANTACID/ANTIGAS MAX LIQ UNKNOWN [Suspect]
     Indication: PEPTIC ULCER
     Dosage: UNK
  5. MAALOX ANTACID/ANTIGAS MAX LIQ UNKNOWN [Suspect]
     Indication: OFF LABEL USE

REACTIONS (8)
  - Myocardial infarction [Recovered/Resolved]
  - Coronary artery occlusion [Recovered/Resolved]
  - Device occlusion [Recovered/Resolved]
  - Retching [Recovered/Resolved]
  - Expired drug administered [Unknown]
  - Underdose [Unknown]
  - Inappropriate schedule of drug administration [Unknown]
  - Therapeutic response unexpected [Unknown]
